FAERS Safety Report 24455185 (Version 2)
Quarter: 2024Q4

REPORT INFORMATION
  Report Type: Spontaneous
  Country: DE (occurrence: DE)
  Receive Date: 20241017
  Receipt Date: 20241018
  Transmission Date: 20250114
  Serious: No
  Sender: ROCHE
  Company Number: DE-ROCHE-3492083

PATIENT

DRUGS (3)
  1. RITUXIMAB [Suspect]
     Active Substance: RITUXIMAB
     Indication: Product used for unknown indication
     Dosage: NEXT INFUSION RECEIVED ON: 02/MAY/2008, 09/MAY/2008, 16/MAY/2008
     Route: 065
     Dates: start: 20080425
  2. RITUXIMAB [Suspect]
     Active Substance: RITUXIMAB
     Dosage: NEXT INFUSION RECEIVED ON: 25/NOV/2009, 03/APR/2013, 16/OCT/2013
     Route: 065
     Dates: start: 20091118
  3. RITUXIMAB [Suspect]
     Active Substance: RITUXIMAB
     Dosage: NEXT INFUSION RECEIVED ON 21/MAR/2012, 27/JUN/2012, 02/JAN/2013
     Route: 065
     Dates: start: 20111207

REACTIONS (1)
  - B-lymphocyte count decreased [Unknown]
